FAERS Safety Report 17136072 (Version 1)
Quarter: 2019Q4

REPORT INFORMATION
  Report Type: Spontaneous
  Country: FR (occurrence: FR)
  Receive Date: 20191210
  Receipt Date: 20191210
  Transmission Date: 20200122
  Serious: Yes (Hospitalization)
  Sender: FDA-Public Use
  Company Number: FR-MYLANLABS-2019M1120606

PATIENT
  Age: 45 Year
  Sex: Male
  Weight: 65 kg

DRUGS (3)
  1. IXPRIM [Suspect]
     Active Substance: ACETAMINOPHEN\TRAMADOL HYDROCHLORIDE
     Indication: PRODUCT USED FOR UNKNOWN INDICATION
     Dosage: 9 DOSAGE FORM, TOTAL
     Route: 048
     Dates: start: 20181126, end: 20181126
  2. THERALENE [Suspect]
     Active Substance: TRIMEPRAZINE
     Indication: PRODUCT USED FOR UNKNOWN INDICATION
     Dosage: 50 DOSAGE FORM, TOTAL
     Route: 048
     Dates: start: 20181126, end: 20181126
  3. MIRTAZAPINE. [Suspect]
     Active Substance: MIRTAZAPINE
     Indication: PRODUCT USED FOR UNKNOWN INDICATION
     Dosage: 4 DOSAGE FORM, TOTAL
     Route: 048
     Dates: start: 20181126, end: 20181126

REACTIONS (3)
  - Altered state of consciousness [Recovered/Resolved]
  - Miosis [Recovered/Resolved]
  - Toxicity to various agents [Unknown]

NARRATIVE: CASE EVENT DATE: 20181126
